FAERS Safety Report 21454600 (Version 2)
Quarter: 2022Q4

REPORT INFORMATION
  Report Type: Report from Study
  Country: US (occurrence: US)
  Receive Date: 20221013
  Receipt Date: 20221215
  Transmission Date: 20230112
  Serious: Yes (Death)
  Sender: FDA-Public Use
  Company Number: US-BIOGEN-2022BI01161232

PATIENT
  Sex: Male

DRUGS (4)
  1. TYSABRI [Suspect]
     Active Substance: NATALIZUMAB
     Indication: Multiple sclerosis
     Route: 050
     Dates: start: 20160808, end: 20180109
  2. TYSABRI [Suspect]
     Active Substance: NATALIZUMAB
     Route: 050
     Dates: start: 20180223, end: 20200810
  3. TYSABRI [Suspect]
     Active Substance: NATALIZUMAB
     Route: 050
     Dates: start: 20210311, end: 20210428
  4. TYSABRI [Suspect]
     Active Substance: NATALIZUMAB
     Dosage: INFUSED OVER 1 HOUR
     Route: 050
     Dates: start: 20210916, end: 20211117

REACTIONS (1)
  - Death [Fatal]
